FAERS Safety Report 7666147 (Version 14)
Quarter: 2013Q3

REPORT INFORMATION
  Report Type: Report from Study
  Country: CA (occurrence: CA)
  Receive Date: 20101112
  Receipt Date: 20130925
  Transmission Date: 20140515
  Serious: Yes (Hospitalization, Other)
  Sender: FDA-Public Use
  Company Number: PHHY2010CA75140

PATIENT
  Age: 56 Year
  Sex: Female

DRUGS (2)
  1. SANDOSTATIN LAR [Suspect]
     Indication: PANCREATITIS CHRONIC
     Route: 030
     Dates: start: 20030501
  2. SANDOSTATIN LAR [Suspect]
     Dosage: 30 MG, QMO
     Route: 030

REACTIONS (13)
  - Pancreatitis relapsing [Recovering/Resolving]
  - Pancreatic cyst [Unknown]
  - Pancreatic duct obstruction [Unknown]
  - Dyspepsia [Unknown]
  - Nausea [Not Recovered/Not Resolved]
  - Aphagia [Unknown]
  - Vomiting [Unknown]
  - Nasal congestion [Unknown]
  - Pain [Unknown]
  - Poor quality sleep [Unknown]
  - Headache [Unknown]
  - Abdominal pain [Unknown]
  - Diarrhoea [Unknown]
